FAERS Safety Report 6898602-6 (Version None)
Quarter: 2010Q3

REPORT INFORMATION
  Report Type: 
  Country: None (occurrence: None)
  Receive Date: 20100802
  Receipt Date: 20071106
  Transmission Date: 20110219
  Serious: No
  Sender: FDA-Public Use
  Company Number: US-PFIZER INC-2007094435

PATIENT
  Sex: Male
  Weight: 92.7 kg

DRUGS (2)
  1. LYRICA [Suspect]
     Indication: NEURALGIA
     Dates: start: 20071001
  2. ACETYLSALICYLIC ACID SRT [Concomitant]

REACTIONS (2)
  - LETHARGY [None]
  - VISUAL IMPAIRMENT [None]
